FAERS Safety Report 7634503-3 (Version None)
Quarter: 2011Q3

REPORT INFORMATION
  Report Type: 
  Country: None (occurrence: None)
  Receive Date: 20110725
  Receipt Date: 20081017
  Transmission Date: 20111222
  Serious: Yes (Other)
  Sender: FDA-Public Use
  Company Number: DE-GENENTECH-321752

PATIENT
  Age: 87 Year
  Sex: Male

DRUGS (1)
  1. LUCENTIS [Suspect]
     Indication: AGE-RELATED MACULAR DEGENERATION
     Route: 031

REACTIONS (7)
  - NO THERAPEUTIC RESPONSE [None]
  - GENERAL PHYSICAL HEALTH DETERIORATION [None]
  - RETINAL HAEMORRHAGE [None]
  - GLAUCOMA [None]
  - APPARENT DEATH [None]
  - CONCOMITANT DISEASE PROGRESSION [None]
  - VISUAL IMPAIRMENT [None]
